FAERS Safety Report 7364105-8 (Version None)
Quarter: 2011Q1

REPORT INFORMATION
  Report Type: 
  Country: None (occurrence: None)
  Receive Date: 20110321
  Receipt Date: 20110315
  Transmission Date: 20110831
  Serious: Yes (Death)
  Sender: FDA-Public Use
  Company Number: PHHY2011US21230

PATIENT
  Sex: Female
  Weight: 75 kg

DRUGS (2)
  1. METFORMIN [Concomitant]
  2. RECLAST [Suspect]
     Dosage: 5 MG
     Route: 042
     Dates: start: 20091014

REACTIONS (2)
  - LACTIC ACIDOSIS [None]
  - RENAL FAILURE ACUTE [None]
